FAERS Safety Report 19623920 (Version 1)
Quarter: 2021Q3

REPORT INFORMATION
  Report Type: Spontaneous
  Country: AT (occurrence: AT)
  Receive Date: 20210728
  Receipt Date: 20210728
  Transmission Date: 20211014
  Serious: Yes (Other)
  Sender: FDA-Public Use
  Company Number: AT-MYLANLABS-2021M1045889

PATIENT
  Sex: Female

DRUGS (7)
  1. TOBRAMYCIN. [Suspect]
     Active Substance: TOBRAMYCIN
     Indication: PSEUDOMONAS INFECTION
     Dosage: UNK
     Route: 042
  2. COLOMYCIN                          /00013203/ [Suspect]
     Active Substance: COLISTIN SULFATE
     Indication: PSEUDOMONAS INFECTION
     Dosage: NEBULISED
  3. CEFTAZIDIME. [Concomitant]
     Active Substance: CEFTAZIDIME
     Indication: PSEUDOMONAS INFECTION
     Dosage: UNK
     Route: 042
  4. COLOMYCIN                          /00013203/ [Concomitant]
     Active Substance: COLISTIN SULFATE
     Indication: PSEUDOMONAS INFECTION
     Route: 042
  5. CIPROFLOXACIN. [Concomitant]
     Active Substance: CIPROFLOXACIN
     Indication: PSEUDOMONAS INFECTION
     Route: 065
  6. TOBRAMYCIN. [Suspect]
     Active Substance: TOBRAMYCIN
     Indication: PSEUDOMONAS INFECTION
     Dosage: NEBULISED
  7. FLUCLOXACILLIN [Concomitant]
     Active Substance: FLUCLOXACILLIN
     Indication: PSEUDOMONAS INFECTION
     Route: 042

REACTIONS (2)
  - Pathogen resistance [Unknown]
  - Bronchial hyperreactivity [Unknown]
